FAERS Safety Report 7529312-X (Version None)
Quarter: 2011Q2

REPORT INFORMATION
  Report Type: 
  Country: None (occurrence: None)
  Receive Date: 20110607
  Receipt Date: 20050708
  Transmission Date: 20111010
  Serious: Yes (Hospitalization, Other)
  Sender: FDA-Public Use
  Company Number: PHFR2005GB02410

PATIENT
  Sex: Male

DRUGS (1)
  1. CLOZARIL [Suspect]
     Indication: SCHIZOPHRENIA
     Dates: start: 19980626

REACTIONS (4)
  - GAIT DISTURBANCE [None]
  - OROPHARYNGEAL PAIN [None]
  - CONFUSIONAL STATE [None]
  - PYREXIA [None]
